FAERS Safety Report 25897042 (Version 1)
Quarter: 2025Q4

REPORT INFORMATION
  Report Type: Spontaneous
  Country: TH (occurrence: TH)
  Receive Date: 20251008
  Receipt Date: 20251008
  Transmission Date: 20260117
  Serious: Yes (Death)
  Sender: INCYTE
  Company Number: TH-002147023-NVSC2025TH154822

PATIENT
  Age: 70 Year

DRUGS (1)
  1. RUXOLITINIB [Suspect]
     Active Substance: RUXOLITINIB
     Indication: Product used for unknown indication
     Dosage: UNK (STRENGTH: 20MG)
     Route: 065

REACTIONS (1)
  - Death [Fatal]
